FAERS Safety Report 23307077 (Version 1)
Quarter: 2023Q4

REPORT INFORMATION
  Report Type: Spontaneous
  Country: US (occurrence: US)
  Receive Date: 20231218
  Receipt Date: 20231218
  Transmission Date: 20240110
  Serious: No
  Sender: FDA-Public Use
  Company Number: US-AMRYT PHARMACEUTICALS DAC-AEGR006586

PATIENT
  Sex: Female

DRUGS (3)
  1. MYCAPSSA [Suspect]
     Active Substance: OCTREOTIDE
     Indication: Product used for unknown indication
     Dosage: UNK
     Route: 048
     Dates: start: 20230404
  2. MYCAPSSA [Suspect]
     Active Substance: OCTREOTIDE
     Dosage: 80 MILLIGRAM
     Route: 048
     Dates: start: 20230423
  3. MYCAPSSA [Suspect]
     Active Substance: OCTREOTIDE
     Dosage: 40 MILLIGRAM
     Route: 048

REACTIONS (5)
  - Insulin-like growth factor increased [Unknown]
  - Acromegaly [Unknown]
  - Pain [Unknown]
  - Gastrointestinal disorder [Unknown]
  - Drug ineffective [Unknown]
